FAERS Safety Report 18620815 (Version 3)
Quarter: 2020Q4

REPORT INFORMATION
  Report Type: Report from Study
  Country: None (occurrence: FR)
  Receive Date: 20201216
  Receipt Date: 20201230
  Transmission Date: 20210114
  Serious: Yes (Hospitalization)
  Sender: FDA-Public Use
  Company Number: FR-ABBVIE-20K-056-3641562-00

PATIENT
  Age: 72 Year
  Sex: Male

DRUGS (2)
  1. DUODOPA [Suspect]
     Active Substance: CARBIDOPA\LEVODOPA
  2. DUODOPA [Suspect]
     Active Substance: CARBIDOPA\LEVODOPA
     Indication: PARKINSON^S DISEASE
     Dosage: MD:12 ML, CD:9ML/H, ED:2 ML?CONNECT AT 10AM AND DISCONNECT AT 8PM
     Route: 050
     Dates: start: 20160720

REACTIONS (14)
  - Refeeding syndrome [Unknown]
  - Dysphagia [Recovered/Resolved]
  - Unevaluable event [Recovering/Resolving]
  - Hypophagia [Unknown]
  - Dysstasia [Not Recovered/Not Resolved]
  - Lung disorder [Recovering/Resolving]
  - Weight decreased [Recovered/Resolved]
  - Medical device site granuloma [Recovering/Resolving]
  - Medical device site haemorrhage [Recovering/Resolving]
  - Mobility decreased [Unknown]
  - Hyperhidrosis [Not Recovered/Not Resolved]
  - Medical device change [Unknown]
  - Decreased appetite [Recovering/Resolving]
  - Device leakage [Recovering/Resolving]

NARRATIVE: CASE EVENT DATE: 2019
